FAERS Safety Report 18329320 (Version 1)
Quarter: 2020Q3

REPORT INFORMATION
  Report Type: Spontaneous
  Country: PT (occurrence: PT)
  Receive Date: 20200930
  Receipt Date: 20200930
  Transmission Date: 20201103
  Serious: Yes (Life-Threatening)
  Sender: FDA-Public Use
  Company Number: PT-ACCORD-203164

PATIENT
  Age: 45 Year
  Sex: Female
  Weight: 68 kg

DRUGS (1)
  1. PACLITAXEL ACCORD [Suspect]
     Active Substance: PACLITAXEL
     Indication: MALIGNANT PERITONEAL NEOPLASM
     Dosage: 302 MG 21/21 DAYS
     Route: 042
     Dates: start: 20200918, end: 20200918

REACTIONS (6)
  - Chest discomfort [Recovered/Resolved]
  - Flushing [Recovered/Resolved]
  - Dyspnoea [Recovered/Resolved]
  - Dizziness [Recovered/Resolved]
  - Burning sensation [Recovered/Resolved]
  - Off label use [Unknown]

NARRATIVE: CASE EVENT DATE: 20200918
